FAERS Safety Report 9961441 (Version 1)
Quarter: 2014Q1

REPORT INFORMATION
  Report Type: Report from Study
  Country: DE (occurrence: DE)
  Receive Date: 20140305
  Receipt Date: 20140305
  Transmission Date: 20141002
  Serious: No
  Sender: FDA-Public Use
  Company Number: PHHY2014DE026233

PATIENT
  Sex: Male

DRUGS (6)
  1. AMN107 [Suspect]
     Indication: CHRONIC MYELOID LEUKAEMIA
     Dosage: 600 MG, UNK
     Dates: start: 20120117
  2. MIRTAZAPIN [Concomitant]
     Dosage: 15 MG, UNK
     Dates: start: 20120630
  3. PANTOZOL [Concomitant]
     Dosage: 40 MG, UNK
     Dates: start: 20120630
  4. DACORTIN [Concomitant]
     Dosage: UNK
     Dates: start: 20120725
  5. DEKRISTOL [Concomitant]
     Dosage: 20 UNK, UNK
     Dates: start: 20120707
  6. ATORVASTATIN [Concomitant]
     Dosage: 10 MG, UNK
     Dates: start: 20131219

REACTIONS (1)
  - No therapeutic response [Not Recovered/Not Resolved]
